FAERS Safety Report 13255385 (Version 1)
Quarter: 2017Q1

REPORT INFORMATION
  Report Type: Spontaneous
  Country: CN (occurrence: CN)
  Receive Date: 20170221
  Receipt Date: 20170221
  Transmission Date: 20170428
  Serious: Yes (Hospitalization, Other)
  Sender: FDA-Public Use
  Company Number: CN-BRISTOL-MYERS SQUIBB COMPANY-BMS-2017-013570

PATIENT
  Age: 47 Year
  Sex: Male
  Weight: 59 kg

DRUGS (11)
  1. GLUCOPHAGE [Suspect]
     Active Substance: METFORMIN HYDROCHLORIDE
     Indication: PRODUCT USED FOR UNKNOWN INDICATION
     Dosage: 500 MG, TID
     Route: 048
     Dates: start: 20161126, end: 20161205
  2. IRBESARTAN. [Suspect]
     Active Substance: IRBESARTAN
     Indication: DIABETIC NEUROPATHY
     Dosage: 150 MG, QD
     Route: 048
     Dates: start: 20161129, end: 20161204
  3. THIOCTIC ACID [Suspect]
     Active Substance: THIOCTIC ACID
     Indication: DIABETIC NEUROPATHY
     Dosage: 0.6 G, QD
     Route: 042
     Dates: start: 20161124, end: 20161203
  4. GLUCOPHAGE [Suspect]
     Active Substance: METFORMIN HYDROCHLORIDE
     Indication: DIABETES MELLITUS
     Dosage: 500 MG, BID
     Route: 048
     Dates: start: 20161125, end: 20161128
  5. ALPROSTADIL. [Suspect]
     Active Substance: ALPROSTADIL
     Indication: CIRCULATORY COLLAPSE
     Dosage: 10 ?G, QD
     Route: 042
     Dates: start: 20161124, end: 20161128
  6. DEXTROMETHORPHAN HYDROBROMIDE. [Suspect]
     Active Substance: DEXTROMETHORPHAN HYDROBROMIDE
     Indication: PYREXIA
     Dosage: 1 DF, UNK
     Route: 065
     Dates: start: 20161203, end: 20161203
  7. ELECTROLYTE                        /00909901/ [Concomitant]
     Indication: BOWEL PREPARATION
     Dosage: UNK
     Route: 065
     Dates: start: 20161203
  8. METHYCOBAL [Suspect]
     Active Substance: METHYLCOBALAMIN
     Indication: NERVOUS SYSTEM DISORDER
     Dosage: 1000 ?G, QD
     Route: 065
     Dates: start: 20161124, end: 20161205
  9. CALCIUM DOBESILATE [Suspect]
     Active Substance: CALCIUM DOBESILATE
     Indication: RETINOPATHY
     Dosage: 1 DF, UNK
     Route: 048
     Dates: start: 20161126, end: 20161205
  10. PSEUDOEPHEDRINE HYDROCHLORIDE. [Suspect]
     Active Substance: PSEUDOEPHEDRINE HYDROCHLORIDE
     Indication: PYREXIA
     Dosage: 1 DF, QD
     Route: 065
     Dates: start: 20161203, end: 20161203
  11. POLYETHYLENE GLYCOL [Concomitant]
     Active Substance: POLYETHYLENE GLYCOLS
     Indication: BOWEL PREPARATION
     Dosage: UNK
     Route: 065
     Dates: start: 20161203

REACTIONS (2)
  - Jaundice acholuric [Recovering/Resolving]
  - Haemolytic anaemia [Recovering/Resolving]

NARRATIVE: CASE EVENT DATE: 20161204
